FAERS Safety Report 16576862 (Version 1)
Quarter: 2019Q3

REPORT INFORMATION
  Report Type: Spontaneous
  Country: JP (occurrence: JP)
  Receive Date: 20190716
  Receipt Date: 20190716
  Transmission Date: 20191004
  Serious: Yes (Other)
  Sender: FDA-Public Use
  Company Number: JP-TEVA-2019-JP-1070919

PATIENT
  Age: 7 Decade
  Sex: Male

DRUGS (4)
  1. AZILECT [Suspect]
     Active Substance: RASAGILINE MESYLATE
     Indication: PARKINSON^S DISEASE
     Dosage: 1 MILLIGRAM DAILY;
     Route: 048
     Dates: start: 20190604
  2. COMTAN [Concomitant]
     Active Substance: ENTACAPONE
     Route: 065
  3. REGNITE [Concomitant]
     Active Substance: GABAPENTIN ENACARBIL
     Route: 065
  4. LEPRINTON [Concomitant]
     Active Substance: CARBIDOPA\LEVODOPA
     Route: 065

REACTIONS (4)
  - Condition aggravated [Recovering/Resolving]
  - Faeces discoloured [Not Recovered/Not Resolved]
  - Arrhythmia [Recovering/Resolving]
  - Constipation [Unknown]

NARRATIVE: CASE EVENT DATE: 20190606
